FAERS Safety Report 11131629 (Version 1)
Quarter: 2015Q2

REPORT INFORMATION
  Report Type: Spontaneous
  Country: US (occurrence: None)
  Receive Date: 20150521
  Receipt Date: 20150521
  Transmission Date: 20150821
  Serious: No
  Sender: FDA-Public Use
  Company Number: None

PATIENT
  Age: 48 Year
  Sex: Male

DRUGS (2)
  1. HUMIRA [Suspect]
     Active Substance: ADALIMUMAB
     Indication: ANKYLOSING SPONDYLITIS
     Dosage: 40MG EVERY 2 WEEKS
     Route: 058
     Dates: start: 20150420
  2. HUMIRA [Suspect]
     Active Substance: ADALIMUMAB
     Indication: PSORIATIC ARTHROPATHY
     Dosage: 40MG EVERY 2 WEEKS
     Route: 058
     Dates: start: 20150420

REACTIONS (4)
  - Blood glucose increased [None]
  - Affective disorder [None]
  - Rhinorrhoea [None]
  - Back pain [None]

NARRATIVE: CASE EVENT DATE: 20150520
